FAERS Safety Report 17821542 (Version 1)
Quarter: 2020Q2

REPORT INFORMATION
  Report Type: Spontaneous
  Country: DE (occurrence: DE)
  Receive Date: 20200525
  Receipt Date: 20200525
  Transmission Date: 20200714
  Serious: Yes (Death, Life-Threatening, Other)
  Sender: FDA-Public Use
  Company Number: DE-AMGEN-DEUSP2020080300

PATIENT

DRUGS (1)
  1. CARFILZOMIB [Suspect]
     Active Substance: CARFILZOMIB
     Indication: PLASMA CELL MYELOMA
     Dosage: UNK
     Route: 065

REACTIONS (9)
  - Infection [Unknown]
  - Cardiotoxicity [Unknown]
  - Pneumonia [Unknown]
  - Sepsis [Unknown]
  - Therapeutic product effect incomplete [Unknown]
  - Plasma cell myeloma [Fatal]
  - Cytopenia [Unknown]
  - Death [Fatal]
  - Neuropathy peripheral [Unknown]
